FAERS Safety Report 4459842-9 (Version None)
Quarter: 2004Q3

REPORT INFORMATION
  Report Type: 
  Country: None (occurrence: None)
  Receive Date: 20040928
  Receipt Date: 20030708
  Transmission Date: 20050211
  Serious: No
  Sender: FDA-Public Use
  Company Number: US-BRISTOL-MYERS SQUIBB COMPANY-12386421

PATIENT
  Sex: Male

DRUGS (1)
  1. TRIMOX [Suspect]
     Route: 048

REACTIONS (3)
  - HYPERSENSITIVITY [None]
  - RESPIRATORY DISORDER [None]
  - URTICARIA [None]
